FAERS Safety Report 5662610-3 (Version None)
Quarter: 2008Q1

REPORT INFORMATION
  Report Type: 
  Country: None (occurrence: None)
  Receive Date: 20080313
  Receipt Date: 20080310
  Transmission Date: 20080703
  Serious: Yes (Hospitalization)
  Sender: FDA-Public Use
  Company Number: FR-BRISTOL-MYERS SQUIBB COMPANY-14110357

PATIENT
  Age: 71 Year
  Sex: Male

DRUGS (4)
  1. MUCOMYSTENDO [Suspect]
     Route: 055
     Dates: start: 20080308
  2. ATROVENT [Concomitant]
  3. PULMICORT [Concomitant]
  4. MEDROL [Concomitant]

REACTIONS (2)
  - DYSPNOEA [None]
  - MALAISE [None]
